FAERS Safety Report 4702165-0 (Version None)
Quarter: 2005Q2

REPORT INFORMATION
  Report Type: 
  Country: None (occurrence: None)
  Receive Date: 20050629
  Receipt Date: 20050531
  Transmission Date: 20051028
  Serious: Yes (Hospitalization)
  Sender: FDA-Public Use
  Company Number: 200514628US

PATIENT
  Sex: Male

DRUGS (4)
  1. LANTUS [Suspect]
     Indication: DIABETES MELLITUS INSULIN-DEPENDENT
     Dosage: DOSE: 30-50; DOSE UNIT: UNITS
  2. NOVOLOG [Concomitant]
     Dosage: DOSE: SLIDING SCALE PRN
  3. VENTOLIN [Concomitant]
     Dosage: DOSE: PRN
  4. NOVOPEN [Concomitant]
     Dosage: DOSE: SLIDING SCALE PRN

REACTIONS (13)
  - ABDOMINAL PAIN [None]
  - BLOOD GLUCOSE DECREASED [None]
  - BLOOD GLUCOSE FLUCTUATION [None]
  - CAMPYLOBACTER INTESTINAL INFECTION [None]
  - DIVERTICULITIS [None]
  - DRUG EFFECT DECREASED [None]
  - DRUG INEFFECTIVE [None]
  - ENTERITIS [None]
  - GASTROENTERITIS YERSINIA [None]
  - HYPOGLYCAEMIA [None]
  - INFLAMMATORY BOWEL DISEASE [None]
  - NERVOUSNESS [None]
  - PHARMACEUTICAL PRODUCT COMPLAINT [None]
